FAERS Safety Report 4448429-X (Version None)
Quarter: 2004Q3

REPORT INFORMATION
  Report Type: 
  Country: None (occurrence: None)
  Receive Date: 20040729
  Receipt Date: 20030814
  Transmission Date: 20050211
  Serious: Yes (Death)
  Sender: FDA-Public Use
  Company Number: NSADSS2003023888

PATIENT
  Age: 83 Year
  Sex: Male
  Weight: 63.5036 kg

DRUGS (4)
  1. RISPERDAL [Suspect]
     Indication: DEMENTIA ALZHEIMER'S TYPE
     Dosage: 0.25 MG, 1 IN 1 DAY, ORAL
     Route: 048
  2. REMINYL [Concomitant]
  3. LIPITOR [Concomitant]
  4. NORVASC [Concomitant]

REACTIONS (1)
  - CEREBROVASCULAR ACCIDENT [None]
